FAERS Safety Report 9246499 (Version 1)
Quarter: 2013Q2

REPORT INFORMATION
  Report Type: Report from Study
  Country: CA (occurrence: CA)
  Receive Date: 20130422
  Receipt Date: 20130422
  Transmission Date: 20140414
  Serious: Yes (Hospitalization)
  Sender: FDA-Public Use
  Company Number: CA-ABBOTT-13P-028-1077550-00

PATIENT
  Age: 38 Year
  Sex: Male
  Weight: 102.6 kg

DRUGS (9)
  1. HUMIRA [Suspect]
     Indication: PSORIATIC ARTHROPATHY
     Route: 058
     Dates: start: 20100709, end: 20130401
  2. HUMIRA [Suspect]
     Route: 058
     Dates: start: 20130404
  3. UNKNOWN MEDICATION [Suspect]
     Indication: PSORIATIC ARTHROPATHY
     Dates: start: 20130330, end: 20130330
  4. UNKNOWN MEDICATION [Suspect]
     Indication: DIZZINESS
  5. UNKNOWN MEDICATION [Suspect]
     Indication: ARTHRALGIA
  6. APO-TRAMADOL/ACET [Suspect]
     Indication: PSORIATIC ARTHROPATHY
     Dosage: 37.5/325 MG
     Route: 048
  7. APO-TRAMADOL/ACET [Suspect]
     Indication: ARTHRALGIA
  8. FOLIC ACID [Concomitant]
     Indication: VITAMIN SUPPLEMENTATION
     Route: 048
     Dates: start: 2007
  9. METHOTREXATE [Concomitant]
     Indication: PSORIATIC ARTHROPATHY
     Dosage: 8 TABLETS
     Dates: start: 2007

REACTIONS (10)
  - Swelling [Recovered/Resolved]
  - Chest discomfort [Recovered/Resolved]
  - Generalised oedema [Recovered/Resolved]
  - Skin tightness [Recovered/Resolved]
  - Pain of skin [Recovered/Resolved]
  - Hypersensitivity [Unknown]
  - Dyspnoea [Recovered/Resolved]
  - Arthralgia [Unknown]
  - Dizziness [Unknown]
  - Local swelling [Unknown]
